FAERS Safety Report 7770342-0 (Version None)
Quarter: 2011Q3

REPORT INFORMATION
  Report Type: 
  Country: None (occurrence: None)
  Receive Date: 20110922
  Receipt Date: 20100802
  Transmission Date: 20111222
  Serious: No
  Sender: FDA-Public Use
  Company Number: US-ASTRAZENECA-2010SE36310

PATIENT
  Age: 841 Month
  Sex: Female

DRUGS (1)
  1. SEROQUEL XR [Suspect]
     Indication: DISSOCIATIVE IDENTITY DISORDER
     Route: 048

REACTIONS (5)
  - DYSPNOEA [None]
  - RESTLESSNESS [None]
  - DRUG DOSE OMISSION [None]
  - TENDONITIS [None]
  - DRUG WITHDRAWAL SYNDROME [None]
